FAERS Safety Report 9298601 (Version 1)
Quarter: 2013Q2

REPORT INFORMATION
  Report Type: Spontaneous
  Country: FR (occurrence: FR)
  Receive Date: 20130520
  Receipt Date: 20130520
  Transmission Date: 20140414
  Serious: Yes (Life-Threatening)
  Sender: FDA-Public Use
  Company Number: FR-ASTRAZENECA-2013SE34648

PATIENT
  Age: 8146 Day
  Sex: Female

DRUGS (6)
  1. XEROQUEL [Suspect]
     Indication: BIPOLAR DISORDER
     Route: 048
  2. XEROQUEL [Suspect]
     Indication: BIPOLAR DISORDER
     Route: 048
     Dates: start: 20130328, end: 20130328
  3. XEROQUEL [Suspect]
     Indication: BIPOLAR DISORDER
     Route: 048
  4. ZOLPIDEM [Suspect]
     Indication: SLEEP DISORDER
     Route: 048
     Dates: start: 20130328, end: 20130328
  5. VALIUM [Concomitant]
  6. VALIUM [Concomitant]

REACTIONS (4)
  - Intentional overdose [Unknown]
  - Suicide attempt [Recovered/Resolved]
  - Toxicity to various agents [Unknown]
  - Coma [Recovered/Resolved]
